FAERS Safety Report 6620797-X (Version None)
Quarter: 2010Q1

REPORT INFORMATION
  Report Type: 
  Country: None (occurrence: None)
  Receive Date: 20100309
  Receipt Date: 20100226
  Transmission Date: 20100710
  Serious: Yes (Hospitalization)
  Sender: FDA-Public Use
  Company Number: CA-WATSON-2010-02324

PATIENT
  Sex: Female

DRUGS (2)
  1. TRELSTAR DEPOT (WATSON LABORATORIES) [Suspect]
     Indication: BREAST CANCER FEMALE
     Dosage: 3.75 MG, ONCE A MONTH
     Route: 030
     Dates: start: 20060221, end: 20100119
  2. TAMOXIFEN CITRATE [Suspect]
     Indication: DRUG USE FOR UNKNOWN INDICATION
     Dosage: 20 MG, DAILY
     Route: 048
     Dates: start: 20060209, end: 20100217

REACTIONS (1)
  - TRANSIENT ISCHAEMIC ATTACK [None]
